FAERS Safety Report 25182256 (Version 1)
Quarter: 2025Q2

REPORT INFORMATION
  Report Type: Spontaneous
  Country: US (occurrence: US)
  Receive Date: 20250410
  Receipt Date: 20250410
  Transmission Date: 20250717
  Serious: No
  Sender: KINIKSA PHARMACEUTICALS
  Company Number: US-Kiniksa Pharmaceuticals Ltd.-2024KPU000625

PATIENT
  Age: 30 Year
  Sex: Male

DRUGS (3)
  1. ARCALYST [Suspect]
     Active Substance: RILONACEPT
     Indication: Pericarditis
     Route: 058
     Dates: start: 20240417
  2. ARCALYST [Suspect]
     Active Substance: RILONACEPT
     Indication: Familial mediterranean fever
     Route: 058
  3. ILARIS [Concomitant]
     Active Substance: CANAKINUMAB
     Indication: Product used for unknown indication
     Route: 065

REACTIONS (11)
  - Product leakage [Unknown]
  - Chest pain [Not Recovered/Not Resolved]
  - Inflammation [Recovering/Resolving]
  - Therapeutic product effect incomplete [Unknown]
  - Injection site rash [Unknown]
  - Injection site pruritus [Unknown]
  - Injection site swelling [Unknown]
  - Injection site pain [Unknown]
  - Injection site erythema [Recovering/Resolving]
  - Injection site phlebitis [Not Recovered/Not Resolved]
  - Upper respiratory tract infection [Unknown]

NARRATIVE: CASE EVENT DATE: 20240401
